FAERS Safety Report 10672079 (Version 2)
Quarter: 2014Q4

REPORT INFORMATION
  Report Type: Spontaneous
  Country: CA (occurrence: CA)
  Receive Date: 20141223
  Receipt Date: 20141223
  Transmission Date: 20150529
  Serious: Yes (Other)
  Sender: FDA-Public Use
  Company Number: CA-SA-2014SA139593

PATIENT
  Age: 28 Year
  Sex: Female

DRUGS (1)
  1. THYROGEN [Suspect]
     Active Substance: THYROTROPIN ALFA
     Indication: DIAGNOSTIC PROCEDURE
     Route: 030
     Dates: start: 20140922, end: 20140923

REACTIONS (2)
  - Abortion spontaneous [Recovered/Resolved]
  - Exposure during pregnancy [Unknown]

NARRATIVE: CASE EVENT DATE: 20141017
